FAERS Safety Report 13933199 (Version 1)
Quarter: 2017Q3

REPORT INFORMATION
  Report Type: Spontaneous
  Country: US (occurrence: US)
  Receive Date: 20170904
  Receipt Date: 20170904
  Transmission Date: 20171127
  Serious: Yes (Hospitalization, Other)
  Sender: FDA-Public Use
  Company Number: US-AMGEN-USASP2017131375

PATIENT
  Sex: Female

DRUGS (3)
  1. PROLIA [Suspect]
     Active Substance: DENOSUMAB
     Indication: OSTEOPOROSIS POSTMENOPAUSAL
     Dosage: 60 MG, Q6MO
     Route: 065
  2. ARIMIDEX [Concomitant]
     Active Substance: ANASTROZOLE
     Dosage: UNK
     Dates: start: 2014
  3. TAMOXIFEN [Concomitant]
     Active Substance: TAMOXIFEN

REACTIONS (7)
  - Rash papular [Not Recovered/Not Resolved]
  - Hysterectomy [Unknown]
  - Blepharitis [Unknown]
  - Gastric ulcer [Not Recovered/Not Resolved]
  - Skin cancer [Not Recovered/Not Resolved]
  - Cataract [Unknown]
  - Vaginal discharge [Not Recovered/Not Resolved]
